FAERS Safety Report 8340160-3 (Version None)
Quarter: 2012Q2

REPORT INFORMATION
  Report Type: 
  Country: None (occurrence: None)
  Receive Date: 20120507
  Receipt Date: 20120224
  Transmission Date: 20120825
  Serious: No
  Sender: FDA-Public Use
  Company Number: US-ASTRAZENECA-2012SE13451

PATIENT
  Sex: Female

DRUGS (2)
  1. ACIPHEX [Concomitant]
     Indication: GASTROOESOPHAGEAL REFLUX DISEASE
  2. VIMOVO [Suspect]
     Route: 048

REACTIONS (4)
  - OSTEOARTHRITIS [None]
  - GASTRIC DISORDER [None]
  - FIBROMYALGIA [None]
  - ABDOMINAL DISCOMFORT [None]
